FAERS Safety Report 12981921 (Version 1)
Quarter: 2016Q4

REPORT INFORMATION
  Report Type: Spontaneous
  Country: US (occurrence: US)
  Receive Date: 20161128
  Receipt Date: 20161128
  Transmission Date: 20170207
  Serious: No
  Sender: FDA-Public Use
  Company Number: None

PATIENT
  Age: 65 Year
  Sex: Male

DRUGS (1)
  1. PROCRIT [Suspect]
     Active Substance: ERYTHROPOIETIN
     Indication: NEPHROGENIC ANAEMIA
     Dosage: 20,000 U EVERY 2 WEEKS AS NEEDED INTRAVENOUS
     Route: 042
     Dates: start: 20160715

REACTIONS (2)
  - Dyspnoea [None]
  - Middle insomnia [None]

NARRATIVE: CASE EVENT DATE: 20161114
